FAERS Safety Report 5816205-9 (Version None)
Quarter: 2008Q3

REPORT INFORMATION
  Report Type: 
  Country: None (occurrence: None)
  Receive Date: 20080721
  Receipt Date: 20080709
  Transmission Date: 20090109
  Serious: Yes (Hospitalization)
  Sender: FDA-Public Use
  Company Number: B0528641A

PATIENT
  Age: 84 Year
  Sex: Male

DRUGS (3)
  1. ARIXTRA [Suspect]
     Dosage: 7.5MG PER DAY
     Route: 058
     Dates: start: 20080416, end: 20080429
  2. DEROXAT [Suspect]
     Indication: DRUG USE FOR UNKNOWN INDICATION
     Route: 048
  3. EQUANIL [Concomitant]
     Dosage: 250MG TWICE PER DAY
     Route: 048

REACTIONS (4)
  - DEHYDRATION [None]
  - HAEMATOMA [None]
  - HAEMOGLOBIN DECREASED [None]
  - RENAL FAILURE [None]
